FAERS Safety Report 20362097 (Version 1)
Quarter: 2022Q1

REPORT INFORMATION
  Report Type: Spontaneous
  Country: US (occurrence: US)
  Receive Date: 20220121
  Receipt Date: 20220121
  Transmission Date: 20220423
  Serious: No
  Sender: FDA-Public Use
  Company Number: US-PFIZER INC-2021294286

PATIENT
  Age: 93 Year
  Sex: Female
  Weight: 50.8 kg

DRUGS (1)
  1. AMLODIPINE BESYLATE [Suspect]
     Active Substance: AMLODIPINE BESYLATE
     Indication: Blood pressure measurement
     Dosage: 5 MG, DAILY, (10MG TAKE ONE HALF TABLET DAILY)

REACTIONS (2)
  - Blood pressure inadequately controlled [Unknown]
  - Peripheral swelling [Unknown]
